FAERS Safety Report 10268153 (Version 1)
Quarter: 2014Q2

REPORT INFORMATION
  Report Type: Spontaneous
  Country: FR (occurrence: FR)
  Receive Date: 20140630
  Receipt Date: 20140630
  Transmission Date: 20141212
  Serious: Yes (Hospitalization)
  Sender: FDA-Public Use
  Company Number: FR-009507513-1406FRA012030

PATIENT
  Age: 73 Year
  Sex: Female

DRUGS (6)
  1. AERIUS [Suspect]
     Dosage: UNK
     Route: 048
     Dates: start: 2010
  2. SINGULAIR [Suspect]
     Dosage: UNK
     Route: 048
     Dates: start: 2010
  3. ATACAND [Suspect]
     Dosage: UNK
     Route: 048
     Dates: start: 201402, end: 20140515
  4. AZOPT [Suspect]
     Route: 047
  5. LASILIX [Suspect]
     Dosage: UNK
     Route: 048
     Dates: start: 2002, end: 2014
  6. SECTRAL [Suspect]
     Dosage: UNK
     Route: 048
     Dates: start: 1981, end: 2002

REACTIONS (3)
  - Organising pneumonia [Unknown]
  - Dyspnoea [Unknown]
  - Pyrexia [Unknown]
